FAERS Safety Report 5329498-1 (Version None)
Quarter: 2007Q1

REPORT INFORMATION
  Report Type: 
  Country: None (occurrence: None)
  Receive Date: 20070227
  Receipt Date: 20070117
  Transmission Date: 20070707
  Serious: Yes (Hospitalization)
  Sender: FDA-Public Use
  Company Number: 2007-00197

PATIENT
  Age: 70 Year
  Sex: Female

DRUGS (1)
  1. INFED [Suspect]
     Indication: IRON DEFICIENCY
     Dosage: 2.5 MG, SINGLE TEST DOSE, INTRAVENOUS
     Route: 042
     Dates: start: 20061205, end: 20061205

REACTIONS (3)
  - ANAPHYLACTIC REACTION [None]
  - CARDIAC ARREST [None]
  - HYPOTENSION [None]
